FAERS Safety Report 9200054 (Version 1)
Quarter: 2013Q1

REPORT INFORMATION
  Report Type: Other
  Country: CH (occurrence: CH)
  Receive Date: 20130329
  Receipt Date: 20130329
  Transmission Date: 20140127
  Serious: Yes (Death)
  Sender: FDA-Public Use
  Company Number: CH-BRISTOL-MYERS SQUIBB COMPANY-18730275

PATIENT
  Sex: 0

DRUGS (4)
  1. PRAVASTATIN SODIUM [Suspect]
     Route: 064
  2. ENALAPRIL [Suspect]
     Route: 064
  3. AMLODIPINE [Suspect]
     Route: 064
  4. METHYLDOPA [Suspect]
     Route: 064

REACTIONS (2)
  - Urethral obstruction [Fatal]
  - Foetal death [Fatal]
